FAERS Safety Report 8494069-5 (Version None)
Quarter: 2012Q2

REPORT INFORMATION
  Report Type: 
  Country: None (occurrence: None)
  Receive Date: 20120628
  Receipt Date: 20120618
  Transmission Date: 20120825
  Serious: Yes (Other)
  Sender: FDA-Public Use
  Company Number: ACO_30442_2012

PATIENT
  Age: 63 Year
  Sex: Male
  Weight: 70.7 kg

DRUGS (5)
  1. THYROID TAB [Concomitant]
  2. CARBAMAZEPINE [Concomitant]
  3. TAMSULOSIN HCL [Concomitant]
  4. AMPYRA [Suspect]
     Indication: GAIT DISTURBANCE
     Dosage: 10 MG, BID, ORAL
     Route: 048
     Dates: start: 20120401, end: 20120517
  5. SERTRALINE HYDROCHLORIDE [Concomitant]

REACTIONS (2)
  - HALLUCINATION [None]
  - PSYCHOTIC DISORDER [None]
